FAERS Safety Report 4526169-6 (Version None)
Quarter: 2004Q4

REPORT INFORMATION
  Report Type: 
  Country: None (occurrence: None)
  Receive Date: 20041210
  Receipt Date: 20041124
  Transmission Date: 20050328
  Serious: Yes (Death)
  Sender: FDA-Public Use
  Company Number: 2004-CN-00438CN

PATIENT
  Age: 78 Year
  Sex: Male

DRUGS (4)
  1. ATROVENT [Suspect]
     Indication: ASTHMA
     Dosage: 20 MCG
     Route: 055
  2. VENTOLIN [Concomitant]
  3. WARFARIN SODIUM [Concomitant]
  4. ASPIRIN [Concomitant]

REACTIONS (3)
  - CARDIAC DISORDER [None]
  - MEDICATION ERROR [None]
  - MYOCARDIAL INFARCTION [None]
